FAERS Safety Report 7930535-6 (Version None)
Quarter: 2011Q4

REPORT INFORMATION
  Report Type: 
  Country: None (occurrence: None)
  Receive Date: 20111121
  Receipt Date: 20111107
  Transmission Date: 20120403
  Serious: Yes (Hospitalization)
  Sender: FDA-Public Use
  Company Number: US-ROCHE-1013965

PATIENT

DRUGS (3)
  1. HERCEPTIN [Suspect]
     Indication: BREAST CANCER METASTATIC
     Dosage: TRASTUZUMAB 2 MG/KG 30 MIN AFTER PACLITAXEL INFUSION IV OVER 30 MIN ON DAY 1,8,15,AND 22 OF EACH CYC
  2. TARCEVA [Suspect]
     Indication: BREAST CANCER METASTATIC
     Dosage: 150 MG PO QD OF EACH CYCLE.
     Route: 048
  3. PACLITAXEL [Suspect]
     Indication: BREAST CANCER METASTATIC
     Dosage: 90 MG/M2 IV OVER 1HR ON DAY 1 ,8,15,AND 22 OF EACH

REACTIONS (4)
  - DEHYDRATION [None]
  - ANAEMIA [None]
  - LOWER GASTROINTESTINAL HAEMORRHAGE [None]
  - NAUSEA [None]
